FAERS Safety Report 9386276 (Version 2)
Quarter: 2013Q3

REPORT INFORMATION
  Report Type: Report from Study
  Country: HU (occurrence: HU)
  Receive Date: 20130708
  Receipt Date: 20130712
  Transmission Date: 20140515
  Serious: Yes (Hospitalization)
  Sender: FDA-Public Use
  Company Number: HU-ROCHE-1223778

PATIENT
  Sex: Male

DRUGS (1)
  1. XELODA [Suspect]
     Indication: COLORECTAL CANCER
     Route: 048
     Dates: start: 20130507

REACTIONS (3)
  - Renal impairment [Not Recovered/Not Resolved]
  - Blood glucose increased [Unknown]
  - Diarrhoea [Recovered/Resolved]
